FAERS Safety Report 9794652 (Version 1)
Quarter: 2014Q1

REPORT INFORMATION
  Report Type: Other
  Country: GB (occurrence: GB)
  Receive Date: 20140102
  Receipt Date: 20140102
  Transmission Date: 20141002
  Serious: Yes (Other)
  Sender: FDA-Public Use
  Company Number: GB-OPTIMER-20130493

PATIENT
  Age: 80 Year
  Sex: Female

DRUGS (8)
  1. DIFICLIR [Suspect]
     Indication: CLOSTRIDIUM DIFFICILE COLITIS
     Dosage: 200 MG, BID
     Route: 048
     Dates: start: 20131123, end: 20131202
  2. ALFACALCIDOL [Concomitant]
     Dosage: UNK
  3. BISOPROLOL [Concomitant]
     Dosage: UNK
  4. CALCICHEW [Concomitant]
     Dosage: UNK
  5. LEVOTHYROXINE [Concomitant]
     Dosage: UNK
  6. OMEPRAZOLE [Concomitant]
     Dosage: UNK
  7. PREDNISOLONE [Concomitant]
     Dosage: UNK
  8. SODIUM BICARBONATE [Concomitant]
     Dosage: UNK

REACTIONS (3)
  - Thrombocytopenia [Recovering/Resolving]
  - Epistaxis [Unknown]
  - Contusion [Unknown]
